FAERS Safety Report 20077911 (Version 1)
Quarter: 2021Q4

REPORT INFORMATION
  Report Type: Spontaneous
  Country: FR (occurrence: FR)
  Receive Date: 20211116
  Receipt Date: 20211116
  Transmission Date: 20220303
  Serious: Yes (Other)
  Sender: FDA-Public Use
  Company Number: FR-AFSSAPS-AVPA20210638

PATIENT
  Age: 52 Year
  Sex: Male

DRUGS (1)
  1. TRAMADOL [Suspect]
     Active Substance: TRAMADOL
     Indication: Product used for unknown indication
     Dosage: UNK(50MG SEVERAL TIMES A DAY)
     Route: 048

REACTIONS (6)
  - Drug dependence [Not Recovered/Not Resolved]
  - Apathy [Not Recovered/Not Resolved]
  - Affective disorder [Not Recovered/Not Resolved]
  - Irritability [Not Recovered/Not Resolved]
  - Behaviour disorder [Not Recovered/Not Resolved]
  - Aggression [Not Recovered/Not Resolved]
